FAERS Safety Report 4366225-9 (Version None)
Quarter: 2004Q2

REPORT INFORMATION
  Report Type: 
  Country: None (occurrence: None)
  Receive Date: 20040527
  Receipt Date: 20040416
  Transmission Date: 20050107
  Serious: No
  Sender: FDA-Public Use
  Company Number: US-BRISTOL-MYERS SQUIBB COMPANY-12564084

PATIENT
  Age: 46 Year
  Sex: Male
  Weight: 120 kg

DRUGS (1)
  1. DEFINITY [Suspect]
     Indication: ECHOCARDIOGRAM
     Dosage: DOSE VALUE: .4 CC AT TIME OF EVENT. FOLLOWED BY 2 SMALL DOSES  TOTAL 1 CC.
     Route: 040
     Dates: start: 20040330, end: 20040330

REACTIONS (1)
  - BACK PAIN [None]
